FAERS Safety Report 10234174 (Version 1)
Quarter: 2014Q1

REPORT INFORMATION
  Report Type: Spontaneous
  Country: US (occurrence: None)
  Receive Date: 20140306
  Receipt Date: 20140306
  Transmission Date: 20141002
  Serious: Yes (Hospitalization)
  Sender: FDA-Public Use
  Company Number: 163-21880-13052963

PATIENT
  Age: 89 Year
  Sex: Male

DRUGS (6)
  1. REVLIMID [Suspect]
     Indication: PLASMA CELL MYELOMA
     Dosage: 10 MG, 3 IN 7 D?TEMPORARILY INTERRUPTED
     Route: 048
     Dates: start: 20100331
  2. AMLODIPINE BESILATE (AMLODIPINE BESILATE) [Concomitant]
  3. LISINOPRIL (LISINOPRIL) [Concomitant]
  4. ADVAIR DISKUS [Concomitant]
  5. CLARITIN (LORATADINE) [Concomitant]
  6. ASPIRIN [Concomitant]

REACTIONS (1)
  - Bradycardia [None]
